FAERS Safety Report 7449590-5 (Version None)
Quarter: 2011Q2

REPORT INFORMATION
  Report Type: 
  Country: None (occurrence: None)
  Receive Date: 20110502
  Receipt Date: 20110425
  Transmission Date: 20111010
  Serious: No
  Sender: FDA-Public Use
  Company Number: US-BAYER-2011-036288

PATIENT
  Sex: Female
  Weight: 61 kg

DRUGS (4)
  1. XANAX [Concomitant]
     Dosage: UNK UNK, PRN
     Route: 048
  2. NEXIUM [Concomitant]
     Dosage: UNK
     Route: 048
  3. ONE A DAY WOMEN'S ACTIVE METABOLISM [Suspect]
     Dosage: 1 DF, QD
     Route: 048
  4. VYVANSE [Concomitant]

REACTIONS (2)
  - ANXIETY [None]
  - PANIC ATTACK [None]
